FAERS Safety Report 7041164-3 (Version None)
Quarter: 2010Q4

REPORT INFORMATION
  Report Type: 
  Country: None (occurrence: None)
  Receive Date: 20101013
  Receipt Date: 20100929
  Transmission Date: 20110411
  Serious: Yes (Other)
  Sender: FDA-Public Use
  Company Number: US-ASTRAZENECA-2010SE47995

PATIENT
  Age: 55 Year
  Sex: Female

DRUGS (5)
  1. ZESTRIL [Suspect]
     Route: 048
  2. ASPIRIN [Concomitant]
  3. GLUCOPHAGE [Concomitant]
  4. CARDURA [Concomitant]
  5. PHENOBARBITAL [Concomitant]

REACTIONS (2)
  - ANGIOEDEMA [None]
  - RESPIRATORY DISTRESS [None]
